FAERS Safety Report 9822356 (Version 2)
Quarter: 2014Q1

REPORT INFORMATION
  Report Type: Spontaneous
  Country: US (occurrence: US)
  Receive Date: 20140116
  Receipt Date: 20140214
  Transmission Date: 20141002
  Serious: No
  Sender: FDA-Public Use
  Company Number: US-JNJFOC-20140106329

PATIENT
  Age: 48 Year
  Sex: Female
  Weight: 90.72 kg

DRUGS (8)
  1. INVEGA SUSTENNA [Suspect]
     Indication: PSYCHOTIC DISORDER
     Route: 030
     Dates: start: 2013
  2. INVEGA SUSTENNA [Suspect]
     Indication: POST-TRAUMATIC STRESS DISORDER
     Route: 030
     Dates: start: 2013
  3. INVEGA SUSTENNA [Suspect]
     Indication: MANIA
     Route: 030
     Dates: start: 2013
  4. INVEGA SUSTENNA [Suspect]
     Indication: BIPOLAR DISORDER
     Route: 030
     Dates: start: 2013
  5. INVEGA [Suspect]
     Indication: PSYCHOTIC DISORDER
     Route: 030
     Dates: start: 201302, end: 2013
  6. INVEGA [Suspect]
     Indication: POST-TRAUMATIC STRESS DISORDER
     Route: 030
     Dates: start: 201302, end: 2013
  7. INVEGA [Suspect]
     Indication: MANIA
     Route: 030
     Dates: start: 201302, end: 2013
  8. INVEGA [Suspect]
     Indication: BIPOLAR DISORDER
     Route: 030
     Dates: start: 201302, end: 2013

REACTIONS (2)
  - Weight increased [Unknown]
  - Drug screen positive [Unknown]
